FAERS Safety Report 11528420 (Version 1)
Quarter: 2015Q3

REPORT INFORMATION
  Report Type: Spontaneous
  Country: US (occurrence: US)
  Receive Date: 20150921
  Receipt Date: 20150921
  Transmission Date: 20151125
  Serious: No
  Sender: FDA-Public Use
  Company Number: US-TEVA-552214USA

PATIENT
  Sex: Female

DRUGS (2)
  1. TAGAMET [Concomitant]
     Active Substance: CIMETIDINE
  2. CLONAZEPAM. [Suspect]
     Active Substance: CLONAZEPAM
     Indication: PANIC DISORDER
     Dosage: 1/2 IN AM AND 1/4 IN PM 1/2 AT NIGHT
     Route: 065
     Dates: start: 2001

REACTIONS (6)
  - Dizziness [Unknown]
  - Anxiety [Unknown]
  - Blood cholesterol increased [Unknown]
  - Balance disorder [Unknown]
  - Fatigue [Unknown]
  - Insomnia [Unknown]
